FAERS Safety Report 14206110 (Version 1)
Quarter: 2017Q4

REPORT INFORMATION
  Report Type: Spontaneous
  Country: US (occurrence: US)
  Receive Date: 20171120
  Receipt Date: 20171120
  Transmission Date: 20180321
  Serious: No
  Sender: FDA-Public Use
  Company Number: US-ACTELION-A-US2017-162654

PATIENT
  Age: 74 Year
  Sex: Male
  Weight: 127.44 kg

DRUGS (4)
  1. ADEMPAS [Concomitant]
     Active Substance: RIOCIGUAT
  2. XARELTO [Concomitant]
     Active Substance: RIVAROXABAN
  3. TYVASO [Suspect]
     Active Substance: TREPROSTINIL
     Indication: PULMONARY ARTERIAL HYPERTENSION
     Dosage: 0.6 MG/ML, 9 BREATHS QID
     Route: 055
     Dates: start: 20130417
  4. OPSUMIT [Suspect]
     Active Substance: MACITENTAN
     Indication: PRODUCT USED FOR UNKNOWN INDICATION
     Route: 048

REACTIONS (16)
  - Fungal infection [Unknown]
  - Wheezing [Unknown]
  - Oedema peripheral [Unknown]
  - Oedema [Unknown]
  - Skin graft [Unknown]
  - Fatigue [Unknown]
  - Paranasal sinus hypersecretion [Unknown]
  - Purulent discharge [Unknown]
  - Scrotal swelling [Unknown]
  - Blister [Unknown]
  - Dyspnoea [Unknown]
  - Blister rupture [Unknown]
  - Dyspnoea exertional [Unknown]
  - Gout [Unknown]
  - Wound [Unknown]
  - Headache [Unknown]
